FAERS Safety Report 5923260-4 (Version None)
Quarter: 2008Q4

REPORT INFORMATION
  Report Type: 
  Country: None (occurrence: None)
  Receive Date: 20081020
  Receipt Date: 20081010
  Transmission Date: 20090506
  Serious: Yes (Hospitalization)
  Sender: FDA-Public Use
  Company Number: JP-BAXTER-2008BH010300

PATIENT
  Age: 66 Year
  Sex: Male

DRUGS (17)
  1. ENDOXAN BAXTER [Suspect]
     Indication: INTERSTITIAL LUNG DISEASE
     Route: 041
     Dates: start: 20080828, end: 20080828
  2. ENDOXAN BAXTER [Suspect]
     Indication: OFF LABEL USE
     Route: 041
     Dates: start: 20080828, end: 20080828
  3. COTRIM [Suspect]
     Indication: PNEUMONIA
     Route: 048
     Dates: start: 20080811, end: 20080924
  4. RENIVACE [Suspect]
     Indication: HYPERTENSION
     Route: 048
     Dates: end: 20080911
  5. MEROPEN [Concomitant]
     Indication: PNEUMONIA
     Route: 041
     Dates: start: 20080818, end: 20080909
  6. PAZUFLOXACIN [Concomitant]
     Indication: PNEUMONIA
     Route: 041
     Dates: start: 20080818, end: 20080909
  7. FENTANYL CITRATE [Concomitant]
     Indication: INTERSTITIAL LUNG DISEASE
     Route: 041
     Dates: start: 20080825, end: 20080924
  8. SOLU-MEDROL [Concomitant]
     Indication: INTERSTITIAL LUNG DISEASE
     Route: 041
     Dates: start: 20080826, end: 20080828
  9. NORVASC [Concomitant]
     Indication: HYPERTENSION
     Route: 048
     Dates: end: 20080911
  10. ALLOPURINOL [Concomitant]
     Indication: HYPERURICAEMIA
     Route: 048
     Dates: end: 20080912
  11. LIPITOR [Concomitant]
     Indication: LIPIDS ABNORMAL
     Route: 048
     Dates: end: 20080912
  12. ONON [Concomitant]
     Indication: ASTHMA
     Route: 048
     Dates: end: 20080830
  13. CODEINE PHOSPHATE [Concomitant]
     Indication: INTERSTITIAL LUNG DISEASE
     Route: 048
     Dates: start: 20080816, end: 20080912
  14. MIDAZOLAM HCL [Concomitant]
     Indication: SEDATION
     Route: 041
     Dates: start: 20080830, end: 20080924
  15. PREDONINE [Concomitant]
     Indication: SEDATION
     Route: 041
     Dates: start: 20080814, end: 20080918
  16. UROMITEXAN [Concomitant]
     Indication: INTERSTITIAL LUNG DISEASE
     Route: 041
     Dates: start: 20080828, end: 20080828
  17. ALBUMIN (HUMAN) [Concomitant]
     Indication: DRUG USE FOR UNKNOWN INDICATION
     Dosage: DOSE UNIT:UNKNOWN
     Route: 041
     Dates: start: 20080904, end: 20080906

REACTIONS (2)
  - BONE MARROW FAILURE [None]
  - RENAL IMPAIRMENT [None]
